FAERS Safety Report 16621341 (Version 1)
Quarter: 2019Q3

REPORT INFORMATION
  Report Type: Spontaneous
  Country: US (occurrence: US)
  Receive Date: 20190723
  Receipt Date: 20190723
  Transmission Date: 20191004
  Serious: No
  Sender: FDA-Public Use
  Company Number: US-OTSUKA-2018_034433

PATIENT

DRUGS (8)
  1. ABILIFY [Suspect]
     Active Substance: ARIPIPRAZOLE
     Indication: VISION BLURRED
  2. ABILIFY [Suspect]
     Active Substance: ARIPIPRAZOLE
     Indication: VITREOUS FLOATERS
  3. REXULTI [Suspect]
     Active Substance: BREXPIPRAZOLE
     Indication: ILLUSION
  4. REXULTI [Suspect]
     Active Substance: BREXPIPRAZOLE
     Indication: VISION BLURRED
  5. ABILIFY [Suspect]
     Active Substance: ARIPIPRAZOLE
     Indication: DISTURBANCE IN ATTENTION
     Dosage: UNK
     Route: 065
  6. ABILIFY [Suspect]
     Active Substance: ARIPIPRAZOLE
     Indication: ILLUSION
  7. REXULTI [Suspect]
     Active Substance: BREXPIPRAZOLE
     Indication: DISTURBANCE IN ATTENTION
     Dosage: UNK
     Route: 065
  8. REXULTI [Suspect]
     Active Substance: BREXPIPRAZOLE
     Indication: VITREOUS FLOATERS

REACTIONS (1)
  - Product use in unapproved indication [Unknown]
